FAERS Safety Report 13587858 (Version 2)
Quarter: 2017Q2

REPORT INFORMATION
  Report Type: Spontaneous
  Country: US (occurrence: US)
  Receive Date: 20170527
  Receipt Date: 20170628
  Transmission Date: 20170830
  Serious: No
  Sender: FDA-Public Use
  Company Number: US-ASTRAZENECA-2017SE55612

PATIENT
  Age: 78 Year
  Sex: Female
  Weight: 63.5 kg

DRUGS (6)
  1. LASIX [Concomitant]
     Active Substance: FUROSEMIDE
     Indication: FLUID RETENTION
     Route: 048
     Dates: start: 2016
  2. ATENOLOL. [Suspect]
     Active Substance: ATENOLOL
     Indication: BLOOD PRESSURE ABNORMAL
     Route: 048
     Dates: start: 2013
  3. POTASSIUM [Concomitant]
     Active Substance: POTASSIUM
     Indication: THERAPY CESSATION
     Route: 048
     Dates: start: 2016
  4. CRESTOR [Suspect]
     Active Substance: ROSUVASTATIN CALCIUM
     Indication: BLOOD CHOLESTEROL INCREASED
     Route: 048
     Dates: start: 2014, end: 201609
  5. CRESTOR [Suspect]
     Active Substance: ROSUVASTATIN CALCIUM
     Indication: BLOOD CHOLESTEROL INCREASED
     Dosage: GENERIC
     Route: 065
     Dates: start: 201609, end: 20170521
  6. ASPIRIN. [Concomitant]
     Active Substance: ASPIRIN
     Indication: CARDIAC DISORDER
     Route: 048
     Dates: start: 2014

REACTIONS (8)
  - Migraine [Not Recovered/Not Resolved]
  - Muscle spasms [Unknown]
  - Drug dose omission [Unknown]
  - Peripheral coldness [Recovered/Resolved]
  - Night sweats [Recovered/Resolved]
  - Anxiety [Recovered/Resolved]
  - Blood cholesterol increased [Unknown]
  - Therapy cessation [Unknown]

NARRATIVE: CASE EVENT DATE: 2014
